FAERS Safety Report 7141718-X (Version None)
Quarter: 2010Q4

REPORT INFORMATION
  Report Type: 
  Country: None (occurrence: None)
  Receive Date: 20101207
  Receipt Date: 20101203
  Transmission Date: 20110411
  Serious: Yes (Life-Threatening, Hospitalization)
  Sender: FDA-Public Use
  Company Number: IT-JNJFOC-20101202166

PATIENT
  Age: 53 Year
  Sex: Female

DRUGS (1)
  1. CAELYX [Suspect]
     Indication: OVARIAN CANCER
     Route: 042

REACTIONS (5)
  - HYPERPYREXIA [None]
  - HYPERTHERMIA [None]
  - RASH [None]
  - RESPIRATORY FAILURE [None]
  - TACHYCARDIA [None]
